FAERS Safety Report 15638223 (Version 1)
Quarter: 2018Q4

REPORT INFORMATION
  Report Type: Spontaneous
  Country: US (occurrence: US)
  Receive Date: 20181120
  Receipt Date: 20181120
  Transmission Date: 20190205
  Serious: No
  Sender: FDA-Public Use
  Company Number: US-JNJFOC-20180613317

PATIENT
  Sex: Male

DRUGS (7)
  1. IMBRUVICA [Suspect]
     Active Substance: IBRUTINIB
     Indication: CHRONIC LYMPHOCYTIC LEUKAEMIA
     Route: 048
     Dates: start: 20180411
  2. UNISOM SLEEPTABS [Concomitant]
     Active Substance: DOXYLAMINE SUCCINATE
  3. LORATADINE. [Concomitant]
     Active Substance: LORATADINE
  4. OMEGA 3 FISH OILS [Concomitant]
     Active Substance: OMEGA-3 FATTY ACIDS
  5. OMEGA                              /00661201/ [Concomitant]
  6. IMBRUVICA [Suspect]
     Active Substance: IBRUTINIB
     Indication: CHRONIC LYMPHOCYTIC LEUKAEMIA
     Route: 048
     Dates: start: 20171116, end: 20180410
  7. COQ10 [Concomitant]
     Active Substance: UBIDECARENONE

REACTIONS (6)
  - Weight decreased [Not Recovered/Not Resolved]
  - Insomnia [Unknown]
  - Joint swelling [Unknown]
  - Decreased appetite [Not Recovered/Not Resolved]
  - Yellow skin [Unknown]
  - Dyspnoea [Not Recovered/Not Resolved]
